FAERS Safety Report 10079938 (Version 1)
Quarter: 2014Q2

REPORT INFORMATION
  Report Type: Spontaneous
  Country: US (occurrence: US)
  Receive Date: 20140415
  Receipt Date: 20140415
  Transmission Date: 20141212
  Serious: No
  Sender: FDA-Public Use
  Company Number: US-ASTRAZENECA-2014SE18977

PATIENT
  Age: 34 Year
  Sex: Female
  Weight: 46.7 kg

DRUGS (7)
  1. OMEPRAZOLE [Suspect]
     Indication: GASTROOESOPHAGEAL REFLUX DISEASE
     Route: 048
     Dates: start: 201311, end: 201312
  2. OMEPRAZOLE [Suspect]
     Indication: GASTROOESOPHAGEAL REFLUX DISEASE
     Route: 048
     Dates: start: 201312, end: 20140309
  3. OMEPRAZOLE [Suspect]
     Indication: GASTROOESOPHAGEAL REFLUX DISEASE
     Route: 048
     Dates: start: 20140309, end: 20140311
  4. LUVOXAMINE [Concomitant]
     Indication: ANXIETY
     Route: 048
  5. PANTOPRAZOLE [Concomitant]
     Indication: GASTROOESOPHAGEAL REFLUX DISEASE
     Route: 048
     Dates: start: 20140311
  6. ALPRAZOLAM [Concomitant]
     Indication: MUSCLE TWITCHING
  7. ABILIFY [Concomitant]
     Indication: ANXIETY DISORDER

REACTIONS (12)
  - Pain [Unknown]
  - Muscle twitching [Unknown]
  - Dyskinesia [Unknown]
  - Throat irritation [Unknown]
  - Chest pain [Unknown]
  - Pain in extremity [Unknown]
  - Restlessness [Unknown]
  - Sleep disorder due to general medical condition, insomnia type [Unknown]
  - Dystonia [Unknown]
  - Agitation [Unknown]
  - Headache [Unknown]
  - Intentional product misuse [Unknown]
